FAERS Safety Report 14140311 (Version 1)
Quarter: 2017Q4

REPORT INFORMATION
  Report Type: Spontaneous
  Country: US (occurrence: US)
  Receive Date: 20171030
  Receipt Date: 20171030
  Transmission Date: 20180321
  Serious: No
  Sender: FDA-Public Use
  Company Number: US-ACCORD-047499

PATIENT
  Age: 40 Year
  Sex: Male
  Weight: 73.48 kg

DRUGS (2)
  1. DRISDOL [Concomitant]
     Active Substance: ERGOCALCIFEROL
  2. ESCITALOPRAM [Suspect]
     Active Substance: ESCITALOPRAM OXALATE
     Indication: VISUAL IMPAIRMENT
     Route: 048

REACTIONS (4)
  - Abnormal faeces [Unknown]
  - Gastrooesophageal reflux disease [Unknown]
  - Abdominal discomfort [Unknown]
  - Abdominal distension [Unknown]
